FAERS Safety Report 8473303-1 (Version None)
Quarter: 2012Q2

REPORT INFORMATION
  Report Type: 
  Country: None (occurrence: None)
  Receive Date: 20120628
  Receipt Date: 20120622
  Transmission Date: 20120825
  Serious: Yes (Hospitalization)
  Sender: FDA-Public Use
  Company Number: FR-AMGEN-FRASP2012027462

PATIENT
  Age: 63 Year
  Sex: Female
  Weight: 60 kg

DRUGS (7)
  1. DOXORUBICIN HCL [Concomitant]
     Dosage: UNK
     Route: 042
     Dates: start: 20120116
  2. VINCRISTINE SULFATE [Concomitant]
     Dosage: UNK
     Route: 042
     Dates: start: 20120116
  3. NEULASTA [Suspect]
     Indication: CHEMOTHERAPY
     Dosage: 6 MG, UNK
     Route: 058
     Dates: start: 20120304, end: 20120327
  4. CYCLOPHOSPHAMIDE [Concomitant]
     Dosage: UNK
     Route: 042
     Dates: start: 20120116
  5. PREDNISOLONE [Concomitant]
     Dosage: UNK
     Route: 042
     Dates: start: 20120116
  6. RITUXIMAB [Concomitant]
     Dosage: UNK
     Route: 042
     Dates: start: 20120116
  7. NEULASTA [Suspect]
     Dosage: 6 MG, UNK
     Route: 058

REACTIONS (3)
  - FEBRILE NEUTROPENIA [None]
  - FEBRILE BONE MARROW APLASIA [None]
  - DEHYDRATION [None]
